FAERS Safety Report 10383770 (Version 1)
Quarter: 2014Q3

REPORT INFORMATION
  Report Type: Spontaneous
  Country: US (occurrence: US)
  Receive Date: 20140814
  Receipt Date: 20140814
  Transmission Date: 20150326
  Serious: Yes (Hospitalization)
  Sender: FDA-Public Use
  Company Number: US-SHIRE-US201404807

PATIENT
  Sex: Male
  Weight: 72.56 kg

DRUGS (2)
  1. PENTASA [Suspect]
     Active Substance: MESALAMINE
     Indication: CROHN^S DISEASE
     Dosage: 500 MG, OTHER (EIGHT TIMES DAILY)
     Route: 048
     Dates: start: 2007
  2. METOPROLOL [Concomitant]
     Active Substance: METOPROLOL
     Indication: HYPERTENSION
     Dosage: 100 MG, 2X/DAY:BID
     Route: 048
     Dates: start: 2002

REACTIONS (3)
  - Tongue neoplasm malignant stage unspecified [Unknown]
  - Off label use [Not Recovered/Not Resolved]
  - Inappropriate schedule of drug administration [Not Recovered/Not Resolved]

NARRATIVE: CASE EVENT DATE: 2007
